FAERS Safety Report 10458710 (Version 1)
Quarter: 2014Q3

REPORT INFORMATION
  Report Type: Spontaneous
  Country: FR (occurrence: None)
  Receive Date: 20140915
  Receipt Date: 20140915
  Transmission Date: 20150326
  Serious: Yes (Other)
  Sender: FDA-Public Use
  Company Number: 2014FR007769

PATIENT
  Sex: Male

DRUGS (1)
  1. ELIGARD [Suspect]
     Active Substance: LEUPROLIDE ACETATE
     Indication: PROSTATE CANCER
     Dates: start: 201407

REACTIONS (7)
  - Spinal pain [None]
  - Injection site pain [None]
  - Hyperhidrosis [None]
  - Wrong technique in drug usage process [None]
  - Hot flush [None]
  - Bone pain [None]
  - Drug administration error [None]
